FAERS Safety Report 12426767 (Version 1)
Quarter: 2016Q2

REPORT INFORMATION
  Report Type: Spontaneous
  Country: AT (occurrence: AT)
  Receive Date: 20160601
  Receipt Date: 20160601
  Transmission Date: 20160815
  Serious: Yes (Other)
  Sender: FDA-Public Use
  Company Number: AT-CELGENEUS-009-21880-14080034

PATIENT

DRUGS (1)
  1. REVLIMID [Suspect]
     Active Substance: LENALIDOMIDE
     Indication: CHRONIC MYELOMONOCYTIC LEUKAEMIA
     Route: 048

REACTIONS (13)
  - Neutropenia [Unknown]
  - Vertigo [Unknown]
  - Rash [Unknown]
  - Renal impairment [Unknown]
  - Tremor [Unknown]
  - Haematoma [Unknown]
  - Drug ineffective [Unknown]
  - Petechiae [Unknown]
  - Leukopenia [Unknown]
  - Erythema [Unknown]
  - Thrombocytopenia [Unknown]
  - Hypersensitivity vasculitis [Unknown]
  - Chronic myelomonocytic leukaemia [Unknown]
